FAERS Safety Report 8140372-8 (Version None)
Quarter: 2012Q1

REPORT INFORMATION
  Report Type: 
  Country: None (occurrence: None)
  Receive Date: 20120216
  Receipt Date: 20120213
  Transmission Date: 20120608
  Serious: No
  Sender: FDA-Public Use
  Company Number: US-PFIZER INC-2011084114

PATIENT
  Sex: Female

DRUGS (1)
  1. NEOMYCIN SULFATE [Suspect]
     Indication: LACERATION
     Dosage: UNK
     Route: 061

REACTIONS (2)
  - BLISTER [None]
  - RASH [None]
